FAERS Safety Report 11538437 (Version 1)
Quarter: 2015Q3

REPORT INFORMATION
  Report Type: Spontaneous
  Country: US (occurrence: None)
  Receive Date: 20150922
  Receipt Date: 20150922
  Transmission Date: 20151125
  Serious: No
  Sender: FDA-Public Use
  Company Number: US-MDT-ADR-2015-01831

PATIENT
  Age: 64 Year
  Sex: Male

DRUGS (2)
  1. CLONIDINE INTRATHECAL 420.0 MCG/ML [Suspect]
     Active Substance: CLONIDINE
     Dosage: 209.94 MCG/DAY
  2. BACLOFEN INTRATHECAL 420.0 MCG/ML [Suspect]
     Active Substance: BACLOFEN
     Dosage: 209.94 MCG/DAY

REACTIONS (2)
  - Cervicobrachial syndrome [None]
  - Foot deformity [None]
